FAERS Safety Report 6050645-0 (Version None)
Quarter: 2009Q1

REPORT INFORMATION
  Report Type: 
  Country: None (occurrence: None)
  Receive Date: 20090121
  Receipt Date: 20090107
  Transmission Date: 20090719
  Serious: Yes (Disabling)
  Sender: FDA-Public Use
  Company Number: 2008US001177

PATIENT
  Age: 64 Year
  Sex: Female
  Weight: 35 kg

DRUGS (6)
  1. AMBISOME [Suspect]
     Indication: MENINGITIS CRYPTOCOCCAL
     Dosage: 150 MG, UID/QD; IV NOS
     Route: 042
     Dates: start: 20080229, end: 20080313
  2. ANCOTIL (FLUCYTOSINE) [Concomitant]
  3. SEROQUEL [Concomitant]
  4. LENDORMIN (BRITIZOLAM) [Concomitant]
  5. VALPROATE SODIUM [Concomitant]
  6. DIFLUCAN [Concomitant]

REACTIONS (3)
  - BREATH ODOUR [None]
  - HYPOKALAEMIA [None]
  - PLATELET COUNT DECREASED [None]
